FAERS Safety Report 19921536 (Version 2)
Quarter: 2021Q4

REPORT INFORMATION
  Report Type: Spontaneous
  Country: DE (occurrence: DE)
  Receive Date: 20211005
  Receipt Date: 20211015
  Transmission Date: 20220303
  Serious: Yes (Other)
  Sender: FDA-Public Use
  Company Number: DE-002147023-NVSC2021DE219676

PATIENT

DRUGS (6)
  1. BENDAMUSTINE [Suspect]
     Active Substance: BENDAMUSTINE
     Indication: Splenomegaly
     Dosage: UNK
     Route: 065
     Dates: start: 2016
  2. BENDAMUSTINE [Suspect]
     Active Substance: BENDAMUSTINE
     Indication: Night sweats
  3. RITUXIMAB [Suspect]
     Active Substance: RITUXIMAB
     Indication: Splenomegaly
     Dosage: UNK
     Route: 065
     Dates: start: 2016
  4. RITUXIMAB [Suspect]
     Active Substance: RITUXIMAB
     Indication: Night sweats
  5. HYDROXYUREA [Suspect]
     Active Substance: HYDROXYUREA
     Indication: Chronic myelomonocytic leukaemia
     Dosage: UNK
     Route: 065
     Dates: start: 201908
  6. IBRUTINIB [Suspect]
     Active Substance: IBRUTINIB
     Indication: Product used for unknown indication
     Dosage: UNK
     Route: 065
     Dates: start: 201905

REACTIONS (11)
  - Splenomegaly [Recovering/Resolving]
  - Bone marrow disorder [Unknown]
  - Lymphocyte count decreased [Unknown]
  - Monocyte count increased [Unknown]
  - Haemoglobin decreased [Unknown]
  - White blood cell count decreased [Unknown]
  - Myeloproliferative neoplasm [Unknown]
  - Night sweats [Unknown]
  - Chronic lymphocytic leukaemia [Unknown]
  - Malignant neoplasm progression [Unknown]
  - Erythropoiesis abnormal [Unknown]

NARRATIVE: CASE EVENT DATE: 20190501
